FAERS Safety Report 4830380-4 (Version None)
Quarter: 2005Q4

REPORT INFORMATION
  Report Type: 
  Country: None (occurrence: None)
  Receive Date: 20051114
  Receipt Date: 20051103
  Transmission Date: 20060501
  Serious: Yes (Hospitalization)
  Sender: FDA-Public Use
  Company Number: USA0510111857

PATIENT
  Age: 66 Year
  Sex: Female

DRUGS (3)
  1. FORTEO [Suspect]
     Dates: start: 20050903
  2. SYNTHROID [Concomitant]
  3. FOSAMAX [Concomitant]

REACTIONS (7)
  - BLOOD PRESSURE FLUCTUATION [None]
  - BLOOD THYROID STIMULATING HORMONE DECREASED [None]
  - CARDIAC DISORDER [None]
  - CHEST PAIN [None]
  - DYSPEPSIA [None]
  - ELECTROCARDIOGRAM ABNORMAL [None]
  - PHARMACEUTICAL PRODUCT COMPLAINT [None]
